FAERS Safety Report 6356593-0 (Version None)
Quarter: 2009Q3

REPORT INFORMATION
  Report Type: 
  Country: None (occurrence: None)
  Receive Date: 20090915
  Receipt Date: 20090904
  Transmission Date: 20100115
  Serious: Yes (Hospitalization, Other)
  Sender: FDA-Public Use
  Company Number: US-BAYER-200710877BWH

PATIENT
  Age: 45 Year
  Sex: Male
  Weight: 97 kg

DRUGS (12)
  1. SORAFENIB [Suspect]
     Indication: NON-SMALL CELL LUNG CANCER
     Dosage: TOTAL DAILY DOSE: 400 MG  UNIT DOSE: 200 MG
     Route: 048
     Dates: start: 20070304, end: 20070315
  2. BEVACIZUMAB [Suspect]
     Indication: NON-SMALL CELL LUNG CANCER
     Route: 042
     Dates: start: 20070302, end: 20070302
  3. TAXOL [Suspect]
     Indication: NON-SMALL CELL LUNG CANCER
     Route: 042
     Dates: start: 20070323, end: 20070323
  4. TAXOL [Suspect]
     Route: 042
     Dates: start: 20070302, end: 20070302
  5. CARBOPLATIN [Suspect]
     Indication: NON-SMALL CELL LUNG CANCER
     Route: 042
     Dates: start: 20070302, end: 20070302
  6. VICODIN [Concomitant]
     Indication: ARTHRALGIA
     Dosage: AS USED: 5/500 MG
     Route: 048
     Dates: start: 20070304
  7. HYDROMET [Concomitant]
     Indication: COUGH
     Route: 048
     Dates: start: 20070207
  8. TYLENOL [Concomitant]
     Indication: INSOMNIA
     Route: 048
     Dates: start: 20070307
  9. DEXAMETHASONE [Concomitant]
     Indication: PREMEDICATION
     Route: 042
     Dates: start: 20070323, end: 20070323
  10. DIPHENHYDRAMINE HCL [Concomitant]
     Indication: PREMEDICATION
     Route: 042
     Dates: start: 20070323, end: 20070323
  11. CIMETIDINE [Concomitant]
     Indication: PREMEDICATION
     Route: 042
     Dates: start: 20070323, end: 20070323
  12. ONDANSETRON [Concomitant]
     Indication: PREMEDICATION
     Route: 042
     Dates: start: 20070323, end: 20070323

REACTIONS (4)
  - ERYTHEMA MULTIFORME [None]
  - PNEUMONIA [None]
  - PULMONARY EMBOLISM [None]
  - PYREXIA [None]
